FAERS Safety Report 13813333 (Version 1)
Quarter: 2017Q3

REPORT INFORMATION
  Report Type: Spontaneous
  Country: US (occurrence: US)
  Receive Date: 20170729
  Receipt Date: 20170729
  Transmission Date: 20171127
  Serious: No
  Sender: FDA-Public Use
  Company Number: US-SHIRE-US201714206

PATIENT
  Sex: Male

DRUGS (1)
  1. XIIDRA [Suspect]
     Active Substance: LIFITEGRAST
     Indication: DRY EYE
     Route: 047

REACTIONS (5)
  - Dry eye [Unknown]
  - Superficial injury of eye [Unknown]
  - Instillation site pain [Recovering/Resolving]
  - Instillation site irritation [Recovering/Resolving]
  - Foreign body sensation in eyes [Unknown]
